FAERS Safety Report 17747314 (Version 1)
Quarter: 2020Q2

REPORT INFORMATION
  Report Type: Spontaneous
  Country: JP (occurrence: JP)
  Receive Date: 20200505
  Receipt Date: 20200505
  Transmission Date: 20200714
  Serious: Yes (Death)
  Sender: FDA-Public Use
  Company Number: JP-ALLERGAN-2018020US

PATIENT
  Sex: Male

DRUGS (1)
  1. ASENAPINE MALEATE - BP [Suspect]
     Active Substance: ASENAPINE MALEATE
     Indication: DELIRIUM
     Dosage: 10 MG, QD
     Route: 060
     Dates: start: 20190417

REACTIONS (2)
  - Off label use [Unknown]
  - Death [Fatal]
